FAERS Safety Report 6510055-6 (Version None)
Quarter: 2009Q4

REPORT INFORMATION
  Report Type: 
  Country: None (occurrence: None)
  Receive Date: 20091222
  Receipt Date: 20090828
  Transmission Date: 20100525
  Serious: No
  Sender: FDA-Public Use
  Company Number: US-BAUSCH-2009BL004393

PATIENT
  Age: 89 Year
  Sex: Female
  Weight: 50 kg

DRUGS (8)
  1. BESIVANCE [Suspect]
     Indication: EYE INFECTION
     Route: 047
     Dates: start: 20090819, end: 20090822
  2. HYDROCHLOROTHIAZIDE [Concomitant]
     Route: 048
  3. FLOVENT [Concomitant]
     Indication: BRONCHITIS CHRONIC
     Route: 049
  4. LEVOTHYROXINE SODIUM [Concomitant]
     Indication: THYROID DISORDER
     Route: 048
  5. ASPIRIN [Concomitant]
     Route: 048
  6. ONE A DAY [Concomitant]
  7. CALCIUM [Concomitant]
  8. MAGNESIUM [Concomitant]

REACTIONS (1)
  - RHINORRHOEA [None]
